FAERS Safety Report 13311546 (Version 3)
Quarter: 2024Q1

REPORT INFORMATION
  Report Type: Spontaneous
  Country: US (occurrence: US)
  Receive Date: 20170309
  Receipt Date: 20240207
  Transmission Date: 20240409
  Serious: Yes (Other)
  Sender: FDA-Public Use
  Company Number: US-JNJFOC-20170300793

PATIENT
  Age: 15 Year
  Sex: Male

DRUGS (9)
  1. RISPERDAL [Suspect]
     Active Substance: RISPERIDONE
     Indication: Product used for unknown indication
     Route: 048
  2. INVEGA [Suspect]
     Active Substance: PALIPERIDONE
     Indication: Product used for unknown indication
     Route: 048
  3. RISPERDAL [Suspect]
     Active Substance: RISPERIDONE
     Indication: Behaviour disorder
     Route: 048
     Dates: end: 201312
  4. RISPERDAL [Suspect]
     Active Substance: RISPERIDONE
     Indication: Agitation
  5. RISPERDAL [Suspect]
     Active Substance: RISPERIDONE
     Indication: Intellectual disability
  6. RISPERDAL [Suspect]
     Active Substance: RISPERIDONE
     Indication: Behaviour disorder
  7. RISPERDAL [Suspect]
     Active Substance: RISPERIDONE
     Indication: Product used for unknown indication
     Route: 048
  8. RISPERDAL [Suspect]
     Active Substance: RISPERIDONE
  9. RISPERIDONE [Suspect]
     Active Substance: RISPERIDONE
     Indication: Agitation
     Route: 048

REACTIONS (2)
  - Obesity [Unknown]
  - Gynaecomastia [Unknown]

NARRATIVE: CASE EVENT DATE: 20030301
